FAERS Safety Report 15451730 (Version 1)
Quarter: 2018Q4

REPORT INFORMATION
  Report Type: Spontaneous
  Country: US (occurrence: US)
  Receive Date: 20181001
  Receipt Date: 20181001
  Transmission Date: 20190204
  Serious: No
  Sender: FDA-Public Use
  Company Number: US-GLAXOSMITHKLINE-US2018171834

PATIENT
  Sex: Female

DRUGS (2)
  1. ADVAIR DISKUS [Suspect]
     Active Substance: FLUTICASONE PROPIONATE\SALMETEROL XINAFOATE
     Indication: CHRONIC OBSTRUCTIVE PULMONARY DISEASE
     Dosage: 1 PUFF(S), BID
     Route: 055
  2. ADVAIR DISKUS [Suspect]
     Active Substance: FLUTICASONE PROPIONATE\SALMETEROL XINAFOATE
     Dosage: UNK UNK, PRN

REACTIONS (8)
  - Intentional underdose [Unknown]
  - Intentional product misuse [Unknown]
  - Inability to afford medication [Unknown]
  - Expired product administered [Unknown]
  - Product dose omission [Unknown]
  - Facial pain [Recovering/Resolving]
  - Wrong technique in device usage process [Unknown]
  - Product use in unapproved indication [Unknown]
